FAERS Safety Report 14953983 (Version 4)
Quarter: 2018Q2

REPORT INFORMATION
  Report Type: Report from Study
  Country: CA (occurrence: CA)
  Receive Date: 20180530
  Receipt Date: 20180628
  Transmission Date: 20180711
  Serious: Yes (Hospitalization)
  Sender: FDA-Public Use
  Company Number: CA-ASTRAZENECA-2018SE67661

PATIENT
  Age: 23714 Day
  Sex: Male
  Weight: 90 kg

DRUGS (7)
  1. TYLENOL [Concomitant]
     Active Substance: ACETAMINOPHEN
     Indication: HEADACHE
     Dosage: PRN
     Route: 048
     Dates: start: 201701
  2. VIGAMOX 0.5% [Concomitant]
     Indication: CONJUNCTIVITIS
     Route: 047
     Dates: start: 20180503
  3. CLAVULIN (AMOXICILLIN-CLAVULANIC ACID) [Concomitant]
     Indication: SINUSITIS
     Route: 048
     Dates: start: 20180507
  4. SINUS RINSE [Concomitant]
     Active Substance: SODIUM BICARBONATE\SODIUM CHLORIDE
     Indication: NASAL POLYPS
     Dosage: 1.0 VAPORISATION DAILY
     Route: 045
     Dates: start: 20140203
  5. ADVAIR HFA [Concomitant]
     Active Substance: FLUTICASONE PROPIONATE\SALMETEROL XINAFOATE
     Indication: ASTHMA
     Route: 055
     Dates: start: 20071014
  6. MEDI-563 [Suspect]
     Active Substance: BENRALIZUMAB
     Indication: NASAL POLYPS
     Route: 058
     Dates: start: 20180424
  7. VENTOLIN [Concomitant]
     Active Substance: ALBUTEROL SULFATE
     Indication: ASTHMA
     Dosage: PRN
     Route: 055
     Dates: start: 20071031

REACTIONS (1)
  - Pancreatitis acute [Not Recovered/Not Resolved]

NARRATIVE: CASE EVENT DATE: 20180514
